FAERS Safety Report 13627893 (Version 1)
Quarter: 2017Q2

REPORT INFORMATION
  Report Type: Spontaneous
  Country: US (occurrence: US)
  Receive Date: 20170607
  Receipt Date: 20170607
  Transmission Date: 20170830
  Serious: No
  Sender: FDA-Public Use
  Company Number: US-ELI_LILLY_AND_COMPANY-US201706000227

PATIENT
  Sex: Female

DRUGS (1)
  1. DULOXETINE HYDROCHLORIDE. [Suspect]
     Active Substance: DULOXETINE HYDROCHLORIDE
     Indication: PRODUCT USED FOR UNKNOWN INDICATION
     Dosage: UNK, UNKNOWN
     Route: 065
     Dates: start: 20170410

REACTIONS (7)
  - Chills [Unknown]
  - Insomnia [Unknown]
  - Hot flush [Unknown]
  - Pruritus [Unknown]
  - Paraesthesia [Unknown]
  - Fibromyalgia [Unknown]
  - Constipation [Unknown]
